FAERS Safety Report 9242425 (Version 1)
Quarter: 2013Q2

REPORT INFORMATION
  Report Type: Spontaneous
  Country: US (occurrence: US)
  Receive Date: 20130419
  Receipt Date: 20130419
  Transmission Date: 20140414
  Serious: No
  Sender: FDA-Public Use
  Company Number: US-PFIZER INC-2013123748

PATIENT
  Age: 80 Year
  Sex: Male
  Weight: 91.61 kg

DRUGS (3)
  1. GABAPENTIN [Suspect]
     Indication: DIABETIC NEUROPATHY
     Dosage: 300 MG, 1X/DAY
     Dates: start: 20121220
  2. GABAPENTIN [Suspect]
     Dosage: 600 MG, 1X/DAY
     Dates: end: 20130415
  3. LYRICA [Suspect]
     Indication: DIABETIC NEUROPATHY
     Dosage: UNK

REACTIONS (1)
  - Tremor [Recovered/Resolved]
